FAERS Safety Report 16896006 (Version 2)
Quarter: 2019Q4

REPORT INFORMATION
  Report Type: Spontaneous
  Country: JP (occurrence: JP)
  Receive Date: 20191008
  Receipt Date: 20191010
  Transmission Date: 20200122
  Serious: Yes (Other)
  Sender: FDA-Public Use
  Company Number: JP-PFIZER INC-2019420785

PATIENT
  Age: 38 Year
  Sex: Female

DRUGS (1)
  1. CEFTRIAXONE SODIUM. [Suspect]
     Active Substance: CEFTRIAXONE SODIUM
     Indication: PNEUMONIA PNEUMOCOCCAL
     Dosage: 2 G, 1X/DAY

REACTIONS (2)
  - Pseudocholelithiasis [Recovering/Resolving]
  - Cholangitis acute [Recovering/Resolving]
